FAERS Safety Report 9450728 (Version 2)
Quarter: 2015Q4

REPORT INFORMATION
  Report Type: Spontaneous
  Country: US (occurrence: US)
  Receive Date: 20130809
  Receipt Date: 20151013
  Transmission Date: 20160305
  Serious: No
  Sender: FDA-Public Use
  Company Number: US-AMGEN-USASP2012057840

PATIENT
  Age: 46 Year
  Sex: Female

DRUGS (1)
  1. NEUPOGEN [Suspect]
     Active Substance: FILGRASTIM
     Indication: CHEMOTHERAPY
     Dosage: UNK UNK, QOD

REACTIONS (4)
  - Pain in extremity [Unknown]
  - Back pain [Unknown]
  - Neck pain [Unknown]
  - Contusion [Unknown]

NARRATIVE: CASE EVENT DATE: 20120615
